FAERS Safety Report 8611646 (Version 2)
Quarter: 2012Q4

REPORT INFORMATION
  Report Type: Spontaneous
  Country: US (occurrence: None)
  Receive Date: 20120530
  Receipt Date: 20121108
  Transmission Date: 20130627
  Serious: Yes (Death, Other)
  Sender: FDA-Public Use
  Company Number: DKLU1080335

PATIENT
  Age: 28 Month
  Sex: Female

DRUGS (5)
  1. SABRIL [Suspect]
     Indication: INFANTILE SPASMS
     Dosage: 13.5 ML, 2 1N 1 D, ORAL
     Route: 048
     Dates: start: 20101122, end: 20120319
  2. KEPPRA [Concomitant]
  3. TOPAMAX [Concomitant]
  4. VITAMIN B6 [Concomitant]
  5. PREDNISOLONE (PREDNISOLONE) [Concomitant]

REACTIONS (2)
  - Death [None]
  - Drug ineffective [None]
